FAERS Safety Report 20946318 (Version 2)
Quarter: 2022Q2

REPORT INFORMATION
  Report Type: Report from Study
  Country: US (occurrence: US)
  Receive Date: 20220610
  Receipt Date: 20220620
  Transmission Date: 20220721
  Serious: Yes (Life-Threatening)
  Sender: FDA-Public Use
  Company Number: US-NOVARTISPH-NVSC2022US132459

PATIENT
  Age: 70 Year
  Sex: Male
  Weight: 90.3 kg

DRUGS (12)
  1. INCLISIRAN [Suspect]
     Active Substance: INCLISIRAN
     Indication: Arteriosclerosis
     Dosage: 1.5 ML, Q6M
     Route: 058
     Dates: start: 20190826
  2. INCLISIRAN [Suspect]
     Active Substance: INCLISIRAN
     Dosage: UNK
     Route: 058
     Dates: start: 20191203
  3. INCLISIRAN [Suspect]
     Active Substance: INCLISIRAN
     Dosage: UNK
     Route: 058
     Dates: start: 20200518
  4. INCLISIRAN [Suspect]
     Active Substance: INCLISIRAN
     Dosage: UNK
     Route: 058
     Dates: start: 20201107
  5. INCLISIRAN [Suspect]
     Active Substance: INCLISIRAN
     Dosage: UNK
     Route: 058
     Dates: start: 20210519
  6. INCLISIRAN [Suspect]
     Active Substance: INCLISIRAN
     Dosage: UNK
     Route: 058
     Dates: start: 20211118
  7. INCLISIRAN [Suspect]
     Active Substance: INCLISIRAN
     Dosage: UNK
     Route: 058
     Dates: start: 20220525
  8. LEQVIO [Suspect]
     Active Substance: INCLISIRAN SODIUM
     Indication: Arteriosclerosis
     Dosage: UNK
     Route: 058
  9. LANTUS [Suspect]
     Active Substance: INSULIN GLARGINE
     Indication: Type 2 diabetes mellitus
     Dosage: 8 UNK, QPM
     Route: 058
     Dates: start: 20201005, end: 20220517
  10. LANTUS [Suspect]
     Active Substance: INSULIN GLARGINE
     Dosage: UNK
     Route: 065
     Dates: start: 20220518
  11. ELIQUIS [Concomitant]
     Active Substance: APIXABAN
     Indication: Product used for unknown indication
     Dosage: UNK
     Route: 065
  12. HUMALOG [Concomitant]
     Active Substance: INSULIN LISPRO
     Indication: Product used for unknown indication
     Dosage: UNK
     Route: 065

REACTIONS (1)
  - Hypoglycaemia [Recovered/Resolved]

NARRATIVE: CASE EVENT DATE: 20220512
